FAERS Safety Report 13133358 (Version 1)
Quarter: 2017Q1

REPORT INFORMATION
  Report Type: Spontaneous
  Country: US (occurrence: US)
  Receive Date: 20170120
  Receipt Date: 20170120
  Transmission Date: 20170428
  Serious: Yes (Death, Hospitalization, Other)
  Sender: FDA-Public Use
  Company Number: US-EGALET US INC-US-2017EGA000011

PATIENT
  Age: 2 Year
  Sex: Male

DRUGS (1)
  1. OXYCODONE HYDROCHLORIDE. [Suspect]
     Active Substance: OXYCODONE HYDROCHLORIDE
     Indication: PRODUCT USED FOR UNKNOWN INDICATION
     Dosage: APPROXIMATELY 5 TABLETS
     Route: 048

REACTIONS (6)
  - Toxicity to various agents [Fatal]
  - Lethargy [Fatal]
  - Respiratory arrest [Fatal]
  - Somnolence [Fatal]
  - Medication error [Fatal]
  - Vomiting [Fatal]

NARRATIVE: CASE EVENT DATE: 2015
